FAERS Safety Report 21169867 (Version 1)
Quarter: 2022Q3

REPORT INFORMATION
  Report Type: Spontaneous
  Country: CL (occurrence: CL)
  Receive Date: 20220804
  Receipt Date: 20220804
  Transmission Date: 20221027
  Serious: Yes (Other)
  Sender: FDA-Public Use
  Company Number: CL-TEVA-2022-CL-2059884

PATIENT

DRUGS (3)
  1. LEVOFLOXACIN [Suspect]
     Active Substance: LEVOFLOXACIN
     Indication: Product used for unknown indication
     Route: 065
  2. COTRIMOXAZOLE [Suspect]
     Active Substance: SULFAMETHOXAZOLE\TRIMETHOPRIM
     Indication: Product used for unknown indication
     Route: 065
  3. PENICILLIN G BENZATHINE [Suspect]
     Active Substance: PENICILLIN G BENZATHINE
     Indication: Product used for unknown indication
     Route: 065

REACTIONS (1)
  - Skin disorder [Unknown]
